FAERS Safety Report 15021113 (Version 1)
Quarter: 2018Q2

REPORT INFORMATION
  Report Type: Spontaneous
  Country: US (occurrence: US)
  Receive Date: 20180618
  Receipt Date: 20180618
  Transmission Date: 20180711
  Serious: Yes (Other)
  Sender: FDA-Public Use
  Company Number: US-TORRENT-00006170

PATIENT
  Sex: Female

DRUGS (1)
  1. CITALOPRAM [Suspect]
     Active Substance: CITALOPRAM HYDROBROMIDE
     Indication: DEMENTIA
     Dosage: UNKNOWN

REACTIONS (6)
  - Off label use [Unknown]
  - Product substitution issue [Unknown]
  - Insomnia [Unknown]
  - Abnormal behaviour [Unknown]
  - Drug ineffective [Unknown]
  - Hallucination [Unknown]
